FAERS Safety Report 7586202-4 (Version None)
Quarter: 2011Q3

REPORT INFORMATION
  Report Type: 
  Country: None (occurrence: None)
  Receive Date: 20110701
  Receipt Date: 20110629
  Transmission Date: 20111222
  Serious: Yes (Other)
  Sender: FDA-Public Use
  Company Number: US-SANOFI-AVENTIS-2011SA037524

PATIENT
  Age: 85 Year
  Sex: Male
  Weight: 86.3 kg

DRUGS (1)
  1. MULTAQ [Suspect]
     Indication: ATRIAL FIBRILLATION
     Route: 048
     Dates: start: 20101201, end: 20110608

REACTIONS (2)
  - CONDITION AGGRAVATED [None]
  - ATRIAL FIBRILLATION [None]
